FAERS Safety Report 13347445 (Version 2)
Quarter: 2017Q2

REPORT INFORMATION
  Report Type: Spontaneous
  Country: US (occurrence: US)
  Receive Date: 20170317
  Receipt Date: 20170525
  Transmission Date: 20170830
  Serious: Yes (Other)
  Sender: FDA-Public Use
  Company Number: US-SHIRE-US201705640

PATIENT
  Age: 4 Month
  Sex: Male
  Weight: 10.3 kg

DRUGS (4)
  1. TRIAMCINOLON                       /00031901/ [Concomitant]
     Indication: DERMATITIS ATOPIC
     Dosage: UNK (0.8 % CREAM), AS REQ^D
     Route: 061
     Dates: start: 20160902
  2. ELAPRASE [Suspect]
     Active Substance: IDURSULFASE
     Indication: MUCOPOLYSACCHARIDOSIS II
     Dosage: 6 MG (0.5 MG/KG), 1X/WEEK
     Route: 041
     Dates: start: 20160428
  3. HYDROCORTISONE                     /00028602/ [Concomitant]
     Active Substance: HYDROCORTISONE
     Indication: DERMATITIS ATOPIC
     Dosage: UNK (2.5% OINTMENT) AS REQ^D
     Route: 061
     Dates: start: 20160902
  4. MULTIVITAMIN                       /00097801/ [Concomitant]
     Active Substance: VITAMINS
     Indication: PROPHYLAXIS
     Dosage: UNK (GTTS), 1X/DAY:QD
     Route: 065

REACTIONS (2)
  - Ear tube insertion [Recovered/Resolved]
  - Central venous catheterisation [Recovered/Resolved]

NARRATIVE: CASE EVENT DATE: 20160603
